FAERS Safety Report 9448342 (Version 2)
Quarter: 2013Q3

REPORT INFORMATION
  Report Type: Spontaneous
  Country: US (occurrence: US)
  Receive Date: 20130808
  Receipt Date: 20130927
  Transmission Date: 20140515
  Serious: No
  Sender: FDA-Public Use
  Company Number: US-009507513-1307USA014009

PATIENT
  Age: 49 Year
  Sex: Male
  Weight: 102.4 kg

DRUGS (12)
  1. PEGINTRON [Suspect]
     Dosage: 150 MICROGRAM, QW REDIPEN
     Route: 058
  2. PAROXETINE [Concomitant]
     Route: 048
  3. METFORMIN [Concomitant]
     Route: 048
  4. CLONIDINE [Concomitant]
     Route: 048
  5. NEXIUM [Concomitant]
     Route: 048
  6. CIALIS [Concomitant]
     Route: 048
  7. CITALOPRAM [Concomitant]
     Route: 048
  8. AMITRIPTYLIN [Concomitant]
     Route: 048
  9. NAPROXEN SODIUM [Concomitant]
     Route: 048
  10. IBUPROFEN [Concomitant]
     Route: 048
  11. RIBASPHERE [Suspect]
  12. INCIVEK [Suspect]

REACTIONS (8)
  - Back pain [Unknown]
  - Infusion site rash [Recovered/Resolved]
  - Injection site pruritus [Recovered/Resolved]
  - Fatigue [Unknown]
  - Dizziness [Unknown]
  - White blood cell count decreased [Unknown]
  - Influenza like illness [Unknown]
  - Dry mouth [Unknown]
